FAERS Safety Report 10436199 (Version 3)
Quarter: 2014Q4

REPORT INFORMATION
  Report Type: Report from Study
  Country: JP (occurrence: JP)
  Receive Date: 20140908
  Receipt Date: 20141022
  Transmission Date: 20150528
  Serious: Yes (Death)
  Sender: FDA-Public Use
  Company Number: JP-SA-2014SA107294

PATIENT
  Age: 4 Year
  Sex: Male

DRUGS (7)
  1. BOSMIN [Concomitant]
     Active Substance: EPINEPHRINE
     Dosage: 1.5 AMPULES
     Dates: start: 201407
  2. ENDOXAN [Concomitant]
     Active Substance: CYCLOPHOSPHAMIDE
     Indication: ACUTE LYMPHOCYTIC LEUKAEMIA
     Route: 042
     Dates: start: 20140625, end: 20140627
  3. BENAMBAX [Suspect]
     Active Substance: PENTAMIDINE
     Indication: PRODUCT USED FOR UNKNOWN INDICATION
     Route: 065
  4. ETOPOSIDE. [Concomitant]
     Active Substance: ETOPOSIDE
     Indication: ACUTE LYMPHOCYTIC LEUKAEMIA
     Route: 042
     Dates: start: 20140625, end: 20140627
  5. MICAFUNGIN [Concomitant]
     Active Substance: MICAFUNGIN
  6. EVOLTRA [Suspect]
     Active Substance: CLOFARABINE
     Indication: ACUTE LYMPHOCYTIC LEUKAEMIA RECURRENT
     Route: 042
     Dates: start: 20140625, end: 20140627
  7. SULFAMETHOXAZOLE AND TRIMETHOPRIM [Suspect]
     Active Substance: SULFAMETHOXAZOLE\TRIMETHOPRIM
     Indication: PRODUCT USED FOR UNKNOWN INDICATION
     Route: 065

REACTIONS (10)
  - Tumour lysis syndrome [Recovered/Resolved]
  - Pleural effusion [Not Recovered/Not Resolved]
  - Anaemia [Recovered/Resolved]
  - Neutrophil count decreased [Not Recovered/Not Resolved]
  - Transaminases increased [Recovered/Resolved]
  - Vomiting [Recovering/Resolving]
  - Febrile neutropenia [Not Recovered/Not Resolved]
  - Acute kidney injury [Recovered/Resolved]
  - Death [Fatal]
  - Platelet count decreased [Not Recovered/Not Resolved]

NARRATIVE: CASE EVENT DATE: 20140625
